FAERS Safety Report 20961047 (Version 1)
Quarter: 2022Q2

REPORT INFORMATION
  Report Type: Spontaneous
  Country: US (occurrence: US)
  Receive Date: 20220615
  Receipt Date: 20220615
  Transmission Date: 20220721
  Serious: Yes (Other)
  Sender: FDA-Public Use
  Company Number: US-009507513-2206USA002516

PATIENT
  Age: 5 Year

DRUGS (9)
  1. TEMODAR [Suspect]
     Active Substance: TEMOZOLOMIDE
     Indication: Neuroblastoma
     Dosage: UNK
     Route: 048
  2. CISPLATIN [Concomitant]
     Active Substance: CISPLATIN
  3. VINCRISTINE [Concomitant]
     Active Substance: VINCRISTINE
  4. DOXORUBICIN [Concomitant]
     Active Substance: DOXORUBICIN
  5. CYCLOPHOSPHAMIDE [Concomitant]
     Active Substance: CYCLOPHOSPHAMIDE
  6. ETOPOSIDE [Concomitant]
     Active Substance: ETOPOSIDE
  7. IRINOTECAN [Concomitant]
     Active Substance: IRINOTECAN
  8. CARBOPLATIN [Concomitant]
     Active Substance: CARBOPLATIN
  9. MELPHALAN [Concomitant]
     Active Substance: MELPHALAN

REACTIONS (2)
  - Myelodysplastic syndrome [Unknown]
  - Product use in unapproved indication [Unknown]
